FAERS Safety Report 4929492-6 (Version None)
Quarter: 2006Q1

REPORT INFORMATION
  Report Type: 
  Country: None (occurrence: None)
  Receive Date: 20060224
  Receipt Date: 20060213
  Transmission Date: 20060701
  Serious: Yes (Other)
  Sender: FDA-Public Use
  Company Number: GBR-2006-0002113

PATIENT
  Age: 75 Year
  Sex: Female

DRUGS (12)
  1. OXYNORM LIQUID(OXYCODONE HYDROCHLORIDE) ORAL SOLUTION [Suspect]
     Dosage: 5 ML BID
     Dates: start: 20051118, end: 20051119
  2. ZYDOL [Concomitant]
  3. AUGMENTIN '125' [Concomitant]
  4. AMOXICILLIN TRIHYDRATE [Concomitant]
  5. EXELON [Concomitant]
  6. SENOKOT [Concomitant]
  7. EFFEXOR XR [Concomitant]
  8. PARALIEF [Concomitant]
  9. RISPERDAL [Concomitant]
  10. ENOXAPARIN SODIUM [Concomitant]
  11. ZOPICLONE [Concomitant]
  12. GERELAX [Concomitant]

REACTIONS (6)
  - BRADYCARDIA [None]
  - BRADYPNOEA [None]
  - HYPOTENSION [None]
  - MEDICATION ERROR [None]
  - RESPIRATORY FAILURE [None]
  - SOMNOLENCE [None]
